FAERS Safety Report 20590010 (Version 1)
Quarter: 2022Q1

REPORT INFORMATION
  Report Type: Spontaneous
  Country: IT (occurrence: IT)
  Receive Date: 20220314
  Receipt Date: 20220314
  Transmission Date: 20220423
  Serious: Yes (Hospitalization, Other)
  Sender: FDA-Public Use
  Company Number: IT-ADVANZ PHARMA-202203001312

PATIENT

DRUGS (2)
  1. PLAQUENIL [Suspect]
     Active Substance: HYDROXYCHLOROQUINE SULFATE
     Indication: Seronegative arthritis
     Dosage: UNK
     Route: 065
     Dates: start: 202105, end: 20210616
  2. CORTISONE [Concomitant]
     Active Substance: CORTISONE
     Indication: Skin exfoliation
     Dosage: UNK

REACTIONS (7)
  - Toxic skin eruption [Unknown]
  - Skin lesion [Unknown]
  - Toxicity to various agents [Unknown]
  - Erythema [Unknown]
  - Skin exfoliation [Unknown]
  - Pruritus [Unknown]
  - Acute generalised exanthematous pustulosis [Unknown]

NARRATIVE: CASE EVENT DATE: 20210613
